FAERS Safety Report 24622664 (Version 2)
Quarter: 2024Q4

REPORT INFORMATION
  Report Type: Spontaneous
  Country: US (occurrence: US)
  Receive Date: 20241115
  Receipt Date: 20241115
  Transmission Date: 20250115
  Serious: Yes (Other)
  Sender: ROCHE
  Company Number: US-ROCHE-10000130971

PATIENT
  Age: 49 Year
  Sex: Female

DRUGS (1)
  1. ALECENSA [Suspect]
     Active Substance: ALECTINIB HYDROCHLORIDE
     Indication: Pancreatic carcinoma
     Dosage: TAKEN WITH FOOD
     Route: 048

REACTIONS (2)
  - Off label use [Unknown]
  - Intestinal perforation [Unknown]
